FAERS Safety Report 21649814 (Version 2)
Quarter: 2022Q4

REPORT INFORMATION
  Report Type: Spontaneous
  Country: US (occurrence: US)
  Receive Date: 20221128
  Receipt Date: 20221221
  Transmission Date: 20230112
  Serious: Yes (Hospitalization)
  Sender: FDA-Public Use
  Company Number: US-TEVA-2022-US-2827945

PATIENT
  Age: 54 Year
  Sex: Male

DRUGS (10)
  1. WARFARIN [Suspect]
     Active Substance: WARFARIN
     Indication: Antiphospholipid syndrome
     Dosage: ADDITIONAL INFO: ACTION TAKEN : INITIALLY STOPPED THEN RESTARTED
     Route: 065
  2. ELTROMBOPAG [Suspect]
     Active Substance: ELTROMBOPAG
     Indication: Thrombocytopenia
     Route: 065
  3. HEPARIN [Suspect]
     Active Substance: HEPARIN SODIUM
     Indication: Antiphospholipid syndrome
     Route: 041
  4. ENOXAPARIN [Suspect]
     Active Substance: ENOXAPARIN
     Indication: Antiphospholipid syndrome
     Dosage: 2 MG/KG DAILY; 1MG/KG EVERY 12HOUR , ADDITIONAL INFO: ACTION TAKEN : TREATMENT CONTINUED
     Route: 041
  5. ROMIPLOSTIM [Concomitant]
     Active Substance: ROMIPLOSTIM
     Indication: Thrombocytopenia
     Route: 065
  6. RITUXIMAB [Concomitant]
     Active Substance: RITUXIMAB
     Indication: Thrombocytopenia
     Route: 065
  7. DEXAMETHASONE [Concomitant]
     Active Substance: DEXAMETHASONE
     Indication: Thrombocytopenia
     Route: 065
  8. HUMAN IMMUNOGLOBULIN G [Concomitant]
     Active Substance: HUMAN IMMUNOGLOBULIN G
     Indication: Thrombocytopenia
     Route: 042
  9. HYDROMORPHONE [Concomitant]
     Active Substance: HYDROMORPHONE
     Indication: Analgesic therapy
     Route: 065
  10. OSELTAMIVIR [Concomitant]
     Active Substance: OSELTAMIVIR
     Indication: Thrombocytopenia
     Route: 065

REACTIONS (4)
  - Drug ineffective [Unknown]
  - Vena cava thrombosis [Unknown]
  - Pulmonary embolism [Unknown]
  - Thrombosis [Unknown]
